FAERS Safety Report 9056625 (Version 1)
Quarter: 2013Q1

REPORT INFORMATION
  Report Type: Spontaneous
  Country: PL (occurrence: PL)
  Receive Date: 20130204
  Receipt Date: 20130204
  Transmission Date: 20140127
  Serious: Yes (Death, Hospitalization)
  Sender: FDA-Public Use
  Company Number: PL-TEVA-383905USA

PATIENT
  Age: 59 None
  Sex: Male
  Weight: 74 kg

DRUGS (1)
  1. TREANDA [Suspect]
     Dosage: DF
     Route: 042
     Dates: start: 20121127

REACTIONS (1)
  - Septic shock [Fatal]
